FAERS Safety Report 21969104 (Version 1)
Quarter: 2023Q1

REPORT INFORMATION
  Report Type: Spontaneous
  Country: US (occurrence: US)
  Receive Date: 20230208
  Receipt Date: 20230208
  Transmission Date: 20230418
  Serious: Yes (Death)
  Sender: FDA-Public Use
  Company Number: US-BAYER-2023P008865

PATIENT
  Age: 52 Year
  Sex: Female

DRUGS (2)
  1. STIVARGA [Suspect]
     Active Substance: REGORAFENIB
     Indication: Product used for unknown indication
     Dosage: UNK
  2. LONSURF [Suspect]
     Active Substance: TIPIRACIL HYDROCHLORIDE\TRIFLURIDINE
     Indication: Colon cancer
     Dosage: 60 MG, BID
     Route: 048
     Dates: start: 20220118

REACTIONS (1)
  - Death [Fatal]

NARRATIVE: CASE EVENT DATE: 20230111
